FAERS Safety Report 5424155-5 (Version None)
Quarter: 2007Q3

REPORT INFORMATION
  Report Type: 
  Country: None (occurrence: None)
  Receive Date: 20070724
  Receipt Date: 20070611
  Transmission Date: 20080115
  Serious: No
  Sender: FDA-Public Use
  Company Number: ACETADOTE_027

PATIENT
  Age: 13 Month
  Sex: Female

DRUGS (1)
  1. ACETADOTE [Suspect]
     Indication: OVERDOSE

REACTIONS (1)
  - OVERDOSE [None]
